FAERS Safety Report 15251286 (Version 2)
Quarter: 2019Q2

REPORT INFORMATION
  Report Type: Spontaneous
  Country: BE (occurrence: BE)
  Receive Date: 20180807
  Receipt Date: 20190418
  Transmission Date: 20190711
  Serious: Yes (Hospitalization, Other)
  Sender: FDA-Public Use
  Company Number: BE-PFIZER INC-2018310508

PATIENT
  Age: 50 Year
  Sex: Female
  Weight: 62 kg

DRUGS (5)
  1. ORGAMETRIL [Concomitant]
     Active Substance: LYNESTRENOL
     Dosage: UNK
  2. XYZAL [Concomitant]
     Active Substance: LEVOCETIRIZINE DIHYDROCHLORIDE
     Dosage: UNK
  3. BELLOZAL [Concomitant]
     Active Substance: BILASTINE
     Dosage: UNK
  4. NARDELZINE [Suspect]
     Active Substance: PHENELZINE SULFATE
     Indication: DEPRESSION
     Dosage: 15 MG, 3X/DAY
     Route: 048
  5. NARDELZINE [Suspect]
     Active Substance: PHENELZINE SULFATE
     Dosage: 15 MG, 4X/DAY
     Route: 048

REACTIONS (5)
  - Kidney infection [Unknown]
  - Renal infarct [Unknown]
  - Hyperhidrosis [Unknown]
  - Stress [Unknown]
  - Abdominal pain upper [Unknown]

NARRATIVE: CASE EVENT DATE: 20180404
